FAERS Safety Report 26177890 (Version 1)
Quarter: 2025Q4

REPORT INFORMATION
  Report Type: Spontaneous
  Country: CN (occurrence: CN)
  Receive Date: 20251219
  Receipt Date: 20251219
  Transmission Date: 20260118
  Serious: Yes (Other)
  Sender: GE HEALTHCARE
  Company Number: None

PATIENT
  Age: 71 Year
  Sex: Male
  Weight: 60 kg

DRUGS (4)
  1. VISIPAQUE [Suspect]
     Active Substance: IODIXANOL
     Indication: Coronary arterial stent insertion
     Dosage: 32 GM, TOTAL
     Route: 013
     Dates: start: 20251204, end: 20251204
  2. VISIPAQUE [Suspect]
     Active Substance: IODIXANOL
     Indication: Ultrasound Doppler
  3. VISIPAQUE [Suspect]
     Active Substance: IODIXANOL
     Indication: Angiocardiogram
  4. VISIPAQUE [Suspect]
     Active Substance: IODIXANOL
     Indication: Coronary angioplasty

REACTIONS (3)
  - Delirium [Recovered/Resolved]
  - Contrast encephalopathy [Recovered/Resolved]
  - Headache [Recovered/Resolved]

NARRATIVE: CASE EVENT DATE: 20251204
